FAERS Safety Report 21745206 (Version 1)
Quarter: 2022Q4

REPORT INFORMATION
  Report Type: Report from Study
  Country: US (occurrence: US)
  Receive Date: 20221219
  Receipt Date: 20221219
  Transmission Date: 20230112
  Serious: Yes (Other)
  Sender: FDA-Public Use
  Company Number: US-ABBVIE-4239658

PATIENT
  Sex: Male

DRUGS (1)
  1. IMBRUVICA [Suspect]
     Active Substance: IBRUTINIB
     Indication: Chronic lymphocytic leukaemia
     Route: 048

REACTIONS (11)
  - Venous repair [Unknown]
  - Head injury [Unknown]
  - Pain [Unknown]
  - Arthropathy [Unknown]
  - Memory impairment [Unknown]
  - Heart rate increased [Unknown]
  - Fall [Unknown]
  - Transient ischaemic attack [Unknown]
  - Concussion [Unknown]
  - Post procedural complication [Unknown]
  - Balance disorder [Unknown]

NARRATIVE: CASE EVENT DATE: 20220101
